FAERS Safety Report 12395483 (Version 3)
Quarter: 2016Q2

REPORT INFORMATION
  Report Type: Spontaneous
  Country: JP (occurrence: JP)
  Receive Date: 20160523
  Receipt Date: 20160608
  Transmission Date: 20160815
  Serious: Yes (Life-Threatening, Hospitalization, Other)
  Sender: FDA-Public Use
  Company Number: JP-MYLANLABS-2016M1020935

PATIENT

DRUGS (9)
  1. CARBOPLATIN MYLAN [Suspect]
     Active Substance: CARBOPLATIN
     Indication: UTERINE CANCER
     Dosage: 543 MG, CYCLE
     Route: 041
     Dates: start: 20150630, end: 20150930
  2. MARZULENE                          /01184501/ [Concomitant]
     Indication: PRODUCT USED FOR UNKNOWN INDICATION
     Dosage: 1.5 G, TID
     Route: 048
  3. PARIET [Concomitant]
     Active Substance: RABEPRAZOLE SODIUM
     Indication: PRODUCT USED FOR UNKNOWN INDICATION
     Route: 048
  4. BEZATOL [Concomitant]
     Active Substance: BEZAFIBRATE
     Indication: PRODUCT USED FOR UNKNOWN INDICATION
     Dosage: 1 DF, BID
     Route: 048
  5. PACLITAXEL. [Suspect]
     Active Substance: PACLITAXEL
     Indication: UTERINE CANCER
     Dosage: 290 MG, CYCLE
     Route: 041
     Dates: start: 20150630, end: 20150930
  6. NORVASC [Concomitant]
     Active Substance: AMLODIPINE BESYLATE
     Indication: PRODUCT USED FOR UNKNOWN INDICATION
     Dosage: 5 MG, QD
     Route: 048
  7. ANTIBIOTICS-RESISTANT LACTIC ACID BACTERIAE [Concomitant]
     Active Substance: UNSPECIFIED INGREDIENT
     Indication: PRODUCT USED FOR UNKNOWN INDICATION
     Route: 048
  8. CARBOPLATIN MYLAN [Suspect]
     Active Substance: CARBOPLATIN
     Dosage: 434 MG, CYCLE
     Route: 041
     Dates: start: 20151028, end: 20151028
  9. PACLITAXEL. [Suspect]
     Active Substance: PACLITAXEL
     Dosage: 232 MG, CYCLE
     Route: 041
     Dates: start: 20151028, end: 20151028

REACTIONS (8)
  - Torsade de pointes [Recovered/Resolved]
  - Electrocardiogram QT prolonged [Recovered/Resolved]
  - Hypokalaemia [Recovered/Resolved]
  - Dehydration [Recovered/Resolved]
  - Haemoglobin decreased [Recovered/Resolved]
  - Lacunar infarction [Recovered/Resolved]
  - Ventricular fibrillation [Recovered/Resolved]
  - Diarrhoea [Recovering/Resolving]

NARRATIVE: CASE EVENT DATE: 20150801
